FAERS Safety Report 6219242-8 (Version None)
Quarter: 2009Q2

REPORT INFORMATION
  Report Type: 
  Country: None (occurrence: None)
  Receive Date: 20090609
  Receipt Date: 20090603
  Transmission Date: 20091009
  Serious: Yes (Other)
  Sender: FDA-Public Use
  Company Number: US-ASTRAZENECA-2009UW14258

PATIENT
  Sex: Female

DRUGS (3)
  1. NEXIUM [Suspect]
     Indication: GASTROOESOPHAGEAL REFLUX DISEASE
     Route: 048
  2. TETRACYCLINE [Concomitant]
  3. PREDNISONE [Concomitant]

REACTIONS (4)
  - HIP ARTHROPLASTY [None]
  - OSTEOARTHRITIS [None]
  - OSTEOPOROSIS [None]
  - SKIN DISORDER [None]
